FAERS Safety Report 4537177-3 (Version None)
Quarter: 2004Q4

REPORT INFORMATION
  Report Type: 
  Country: None (occurrence: None)
  Receive Date: 20041223
  Receipt Date: 20041215
  Transmission Date: 20050328
  Serious: Yes (Other)
  Sender: FDA-Public Use
  Company Number: PHBS2004IT17079

PATIENT
  Age: 22 Year
  Sex: Female

DRUGS (2)
  1. NASONEX [Concomitant]
     Indication: SINUSITIS
  2. TORECAN [Suspect]
     Indication: VERTIGO
     Dosage: 1 DF, QD
     Route: 048

REACTIONS (2)
  - TACHYCARDIA [None]
  - TONGUE SPASM [None]
